FAERS Safety Report 23800380 (Version 2)
Quarter: 2024Q2

REPORT INFORMATION
  Report Type: Spontaneous
  Country: US (occurrence: US)
  Receive Date: 20240430
  Receipt Date: 20240503
  Transmission Date: 20240716
  Serious: Yes (Death, Hospitalization)
  Sender: FDA-Public Use
  Company Number: US-BIOMARINAP-US-2024-157580

PATIENT

DRUGS (3)
  1. NAGLAZYME [Suspect]
     Active Substance: GALSULFASE
     Indication: Mucopolysaccharidosis VI
     Dosage: 35 MILLIGRAM, QW
     Route: 042
     Dates: start: 201901
  2. NAGLAZYME [Suspect]
     Active Substance: GALSULFASE
     Dosage: UNK, QW
     Route: 042
     Dates: start: 20170905
  3. HEPARIN [Concomitant]
     Active Substance: HEPARIN SODIUM
     Indication: Product used for unknown indication

REACTIONS (1)
  - Death [Fatal]

NARRATIVE: CASE EVENT DATE: 20240426
